FAERS Safety Report 6406540-8 (Version None)
Quarter: 2009Q4

REPORT INFORMATION
  Report Type: 
  Country: None (occurrence: None)
  Receive Date: 20091019
  Receipt Date: 20091010
  Transmission Date: 20100525
  Serious: Yes (Other)
  Sender: FDA-Public Use
  Company Number: US-AMGEN-QUU368675

PATIENT
  Sex: Male

DRUGS (1)
  1. ENBREL [Suspect]
     Indication: RHEUMATOID ARTHRITIS
     Route: 058
     Dates: start: 19991201

REACTIONS (5)
  - NERVE INJURY [None]
  - SKIN LACERATION [None]
  - SKIN ULCER HAEMORRHAGE [None]
  - TOOTH ABSCESS [None]
  - VASCULITIS [None]
